FAERS Safety Report 19912843 (Version 1)
Quarter: 2021Q4

REPORT INFORMATION
  Report Type: Spontaneous
  Country: US (occurrence: US)
  Receive Date: 20211004
  Receipt Date: 20211004
  Transmission Date: 20220303
  Serious: Yes (Hospitalization, Other)
  Sender: FDA-Public Use
  Company Number: US-HIKMA PHARMACEUTICALS USA INC.-US-H14001-21-04256

PATIENT
  Sex: Male

DRUGS (1)
  1. CORTISONE [Suspect]
     Active Substance: CORTISONE
     Indication: Adrenalectomy
     Route: 048

REACTIONS (2)
  - Pulmonary oedema [Recovering/Resolving]
  - Lung neoplasm malignant [Recovering/Resolving]
